FAERS Safety Report 20456217 (Version 1)
Quarter: 2022Q1

REPORT INFORMATION
  Report Type: Spontaneous
  Country: FR (occurrence: FR)
  Receive Date: 20220210
  Receipt Date: 20220210
  Transmission Date: 20220423
  Serious: Yes (Hospitalization, Other)
  Sender: FDA-Public Use
  Company Number: FR-SA-SAC20220124000678

PATIENT
  Age: 53 Year
  Sex: Female

DRUGS (11)
  1. METHOTREXATE SODIUM [Suspect]
     Active Substance: METHOTREXATE SODIUM
     Indication: Psoriatic arthropathy
     Dosage: 5 MG, WEEKLY
  2. METHOTREXATE SODIUM [Suspect]
     Active Substance: METHOTREXATE SODIUM
     Indication: Rheumatic disorder
     Dosage: 15 MG, WEEKLY
     Route: 065
  3. METHOTREXATE SODIUM [Suspect]
     Active Substance: METHOTREXATE SODIUM
     Dosage: 20 MG, WEEKLY
  4. HUMIRA [Concomitant]
     Active Substance: ADALIMUMAB
  5. AUGMENTIN [Concomitant]
     Active Substance: AMOXICILLIN\CLAVULANATE POTASSIUM
  6. NEORAL [Concomitant]
     Active Substance: CYCLOSPORINE
  7. CLINDAMYCIN HYDROCHLORIDE [Concomitant]
     Active Substance: CLINDAMYCIN HYDROCHLORIDE
  8. TALTZ [Concomitant]
     Active Substance: IXEKIZUMAB
  9. PREDNISONE [Concomitant]
     Active Substance: PREDNISONE
  10. SILVER SULFADIAZINE [Concomitant]
     Active Substance: SILVER SULFADIAZINE
  11. TARGOCID [Concomitant]
     Active Substance: TEICOPLANIN

REACTIONS (28)
  - Leukocyturia [Unknown]
  - Staphylococcal bacteraemia [Unknown]
  - Streptococcal bacteraemia [Unknown]
  - Tooth disorder [Unknown]
  - Pustular psoriasis [Unknown]
  - Malaise [Unknown]
  - Psoriatic arthropathy [Unknown]
  - Dermatitis exfoliative generalised [Unknown]
  - Enthesopathy [Unknown]
  - Nail disorder [Unknown]
  - Diffuse alopecia [Unknown]
  - Asthenia [Unknown]
  - Chills [Unknown]
  - Psoriasis [Unknown]
  - Pallor [Unknown]
  - Skin exfoliation [Unknown]
  - Hypertension [Unknown]
  - Polyuria [Unknown]
  - Polydipsia [Unknown]
  - Arthralgia [Unknown]
  - Nausea [Unknown]
  - Dermatitis psoriasiform [Unknown]
  - Skin lesion [Recovered/Resolved]
  - Pyrexia [Unknown]
  - Phlebitis [Unknown]
  - Tenosynovitis [Unknown]
  - Anxiety [Unknown]
  - Incorrect dose administered [Unknown]

NARRATIVE: CASE EVENT DATE: 20150901
